FAERS Safety Report 7217938-2 (Version None)
Quarter: 2011Q1

REPORT INFORMATION
  Report Type: 
  Country: None (occurrence: None)
  Receive Date: 20110110
  Receipt Date: 20110106
  Transmission Date: 20110831
  Serious: Yes (Death)
  Sender: FDA-Public Use
  Company Number: A0800779A

PATIENT
  Age: 59 Year
  Sex: Male

DRUGS (9)
  1. SIMVASTATIN [Concomitant]
  2. SENNA [Concomitant]
  3. PROMACTA [Suspect]
     Indication: IDIOPATHIC THROMBOCYTOPENIC PURPURA
     Dosage: 75MG PER DAY
     Route: 048
     Dates: start: 20090113, end: 20090717
  4. IMMUNE GLOBULIN INTRAVENOUS (HUMAN) [Concomitant]
  5. FERROUS SULFATE TAB [Concomitant]
  6. OMEPRAZOLE [Concomitant]
  7. TESTOSTERONE PATCH [Concomitant]
  8. MULTI-VITAMINS [Concomitant]
  9. METOPROLOL [Concomitant]

REACTIONS (8)
  - ANAEMIA [None]
  - DRUG INEFFECTIVE [None]
  - HEPATOSPLENOMEGALY [None]
  - LYMPHADENOPATHY [None]
  - INCREASED TENDENCY TO BRUISE [None]
  - B-CELL LYMPHOMA [None]
  - MUCOSAL HAEMORRHAGE [None]
  - WEIGHT DECREASED [None]
